FAERS Safety Report 5788005-X (Version None)
Quarter: 2008Q2

REPORT INFORMATION
  Report Type: 
  Country: None (occurrence: None)
  Receive Date: 20080625
  Receipt Date: 20080613
  Transmission Date: 20081010
  Serious: Yes (Hospitalization)
  Sender: FDA-Public Use
  Company Number: US-ELI_LILLY_AND_COMPANY-US200806003128

PATIENT
  Age: 48 Year
  Sex: Female

DRUGS (7)
  1. CYMBALTA [Suspect]
     Indication: NECK PAIN
     Dosage: 60 MG, AS NEEDED
     Dates: start: 20050101
  2. OXYCONTIN [Concomitant]
     Dosage: 20 MG, 2/D
  3. PERCOCET [Concomitant]
     Dosage: 1 D/F, AS NEEDED
  4. SINEMET [Concomitant]
     Indication: MUSCLE RELAXANT THERAPY
  5. AMBIEN [Concomitant]
  6. COREG [Concomitant]
     Indication: HYPERTENSION
  7. PREMPRO [Concomitant]

REACTIONS (8)
  - DIABETES MELLITUS [None]
  - DIZZINESS [None]
  - DRUG WITHDRAWAL SYNDROME [None]
  - EYE DISORDER [None]
  - FATIGUE [None]
  - INFLUENZA [None]
  - THYROID DISORDER [None]
  - VOMITING [None]
